FAERS Safety Report 4401206-8 (Version None)
Quarter: 2004Q3

REPORT INFORMATION
  Report Type: 
  Country: None (occurrence: None)
  Receive Date: 20040907
  Receipt Date: 20031219
  Transmission Date: 20050211
  Serious: Yes (Hospitalization)
  Sender: FDA-Public Use
  Company Number: US-BRISTOL-MYERS SQUIBB COMPANY-12461752

PATIENT
  Age: 46 Year
  Sex: Male
  Weight: 85 kg

DRUGS (10)
  1. COUMADIN [Suspect]
     Indication: DEEP VEIN THROMBOSIS
     Dosage: RECENT DOSE: 5 MG (1 TAB) DAILY, INCREASED TO 6 MG (5MG PLUS 1MG TAB) DAILY.
     Route: 048
  2. DILANTIN [Suspect]
  3. PHENOBARBITAL TAB [Suspect]
  4. LIPITOR [Concomitant]
  5. METFORMIN HCL [Concomitant]
  6. NAPROXEN [Concomitant]
  7. MULTI-VITAMIN [Concomitant]
  8. VITAMIN E [Concomitant]
  9. GARLIC [Concomitant]
  10. INSULIN [Concomitant]

REACTIONS (5)
  - CONTUSION [None]
  - DRUG LEVEL FLUCTUATING [None]
  - FEELING ABNORMAL [None]
  - INTERNATIONAL NORMALISED RATIO DECREASED [None]
  - LETHARGY [None]
